FAERS Safety Report 20643504 (Version 1)
Quarter: 2022Q1

REPORT INFORMATION
  Report Type: Spontaneous
  Country: CA (occurrence: None)
  Receive Date: 20220328
  Receipt Date: 20220328
  Transmission Date: 20220423
  Serious: Yes (Other)
  Sender: FDA-Public Use
  Company Number: CA-ROCHE-3056677

PATIENT
  Age: 33 Year
  Sex: Female

DRUGS (15)
  1. RITUXIMAB [Suspect]
     Active Substance: RITUXIMAB
     Indication: Granulomatosis with polyangiitis
     Route: 041
  2. RAMIPRIL [Concomitant]
     Active Substance: RAMIPRIL
  3. TOPIRAMATE [Concomitant]
     Active Substance: TOPIRAMATE
  4. TYLENOL [Concomitant]
     Active Substance: ACETAMINOPHEN
  5. ZOPICLONE [Concomitant]
     Active Substance: ZOPICLONE
  6. ESCITALOPRAM [Concomitant]
     Active Substance: ESCITALOPRAM OXALATE
  7. BENADRYL [Concomitant]
     Active Substance: DIPHENHYDRAMINE HYDROCHLORIDE
  8. EZETIMIBE [Concomitant]
     Active Substance: EZETIMIBE
  9. FOLIC ACID [Concomitant]
     Active Substance: FOLIC ACID
  10. GLICLAZIDE [Concomitant]
     Active Substance: GLICLAZIDE
  11. JARDIANCE [Concomitant]
     Active Substance: EMPAGLIFLOZIN
  12. METFORMIN [Concomitant]
     Active Substance: METFORMIN HYDROCHLORIDE
  13. METHOTREXATE [Concomitant]
     Active Substance: METHOTREXATE
  14. METHYLPREDNISOLONE SODIUM SUCCINATE [Concomitant]
     Active Substance: METHYLPREDNISOLONE SODIUM SUCCINATE
  15. PREDNISONE [Concomitant]
     Active Substance: PREDNISONE

REACTIONS (6)
  - Blood pressure diastolic abnormal [Recovered/Resolved]
  - Blood pressure fluctuation [Recovered/Resolved]
  - Heart rate increased [Recovered/Resolved]
  - Infusion related reaction [Recovered/Resolved]
  - Oxygen saturation decreased [Recovered/Resolved]
  - Seizure [Recovered/Resolved]
